FAERS Safety Report 7319581-3 (Version None)
Quarter: 2011Q1

REPORT INFORMATION
  Report Type: 
  Country: None (occurrence: None)
  Receive Date: 20110216
  Receipt Date: 20110208
  Transmission Date: 20110831
  Serious: Yes (Other)
  Sender: FDA-Public Use
  Company Number: GER/UKI/11/0017372

PATIENT
  Age: 68 Year
  Sex: Female
  Weight: 60 kg

DRUGS (4)
  1. ALENDRONIC ACID (ALENDRONIC ACID) [Suspect]
     Indication: OSTEOPOROSIS PROPHYLAXIS
     Dosage: 70 MG, ORAL
     Route: 048
  2. RANITIDINE [Concomitant]
  3. AMLODIPINE [Concomitant]
  4. RAMIPRIL [Concomitant]

REACTIONS (2)
  - RENAL DISORDER [None]
  - HYPERTENSION [None]
